FAERS Safety Report 25368360 (Version 2)
Quarter: 2025Q2

REPORT INFORMATION
  Report Type: Spontaneous
  Country: US (occurrence: US)
  Receive Date: 20250528
  Receipt Date: 20250616
  Transmission Date: 20250717
  Serious: Yes (Hospitalization, Other)
  Sender: BRISTOL-MYERS SQUIBB COMPANY
  Company Number: US-BRISTOL-MYERS SQUIBB COMPANY-2025-076556

PATIENT
  Age: 94 Year
  Weight: 54.9 kg

DRUGS (30)
  1. ELIQUIS [Suspect]
     Active Substance: APIXABAN
     Indication: Carotid artery stenosis
     Dosage: 60 TABLET
     Route: 048
     Dates: start: 20250219, end: 20250429
  2. ELIQUIS [Suspect]
     Active Substance: APIXABAN
     Indication: Aortic stenosis
     Dosage: 60 TABLET
     Route: 048
     Dates: start: 20250527
  3. ELIQUIS [Suspect]
     Active Substance: APIXABAN
     Indication: Aortic dissection
  4. ACETAMINOPHEN [Concomitant]
     Active Substance: ACETAMINOPHEN
     Indication: Pain
     Route: 048
  5. VITAMIN C [Concomitant]
     Active Substance: ASCORBIC ACID
     Indication: Product used for unknown indication
     Route: 048
  6. VITAMIN B COMPLEX [Concomitant]
     Active Substance: CYANOCOBALAMIN\DEXPANTHENOL\NIACINAMIDE\PYRIDOXINE HYDROCHLORIDE\RIBOFLAVIN 5^-PHOSPHATE SODIUM\THIA
     Indication: Product used for unknown indication
     Route: 048
  7. BIOTIN [Concomitant]
     Active Substance: BIOTIN
     Indication: Product used for unknown indication
     Route: 048
  8. CALTRATE [Concomitant]
     Active Substance: CALCIUM CARBONATE
     Indication: Product used for unknown indication
     Route: 048
  9. VITAMIN D3 [Concomitant]
     Active Substance: CHOLECALCIFEROL
     Indication: Product used for unknown indication
     Dosage: 25 MCG (1,000 UNIT) TABLET
     Route: 048
  10. RESTASIS [Concomitant]
     Active Substance: CYCLOSPORINE
     Indication: Product used for unknown indication
     Route: 047
     Dates: start: 20200617
  11. DICLOFENAC [Concomitant]
     Active Substance: DICLOFENAC
     Indication: Product used for unknown indication
     Dosage: APPLY TOPICALLY DAILY. USES ON KNEE
     Route: 061
  12. PLENDIL [Concomitant]
     Active Substance: FELODIPINE
     Indication: Product used for unknown indication
     Dosage: 90 TABET
     Route: 048
     Dates: start: 20250122
  13. FERROUS SULFATE [Concomitant]
     Active Substance: FERROUS SULFATE
     Indication: Product used for unknown indication
     Dosage: 65 MG IRON
     Route: 048
  14. NEURONTIN [Concomitant]
     Active Substance: GABAPENTIN
     Indication: Product used for unknown indication
     Dosage: 90 CAPSULE, AT BEDTIME
     Route: 048
     Dates: start: 20250107
  15. NEURONTIN [Concomitant]
     Active Substance: GABAPENTIN
     Dosage: 180 CAPSULE
     Route: 048
     Dates: start: 20250106
  16. LIDODERM [Concomitant]
     Active Substance: LIDOCAINE
     Indication: Product used for unknown indication
     Route: 048
     Dates: start: 20250422
  17. LIDODERM [Concomitant]
     Active Substance: LIDOCAINE
     Dosage: PATCH
     Route: 062
  18. HYDROCHLOROTHIAZIDE [Concomitant]
     Active Substance: HYDROCHLOROTHIAZIDE
     Indication: Product used for unknown indication
     Dosage: 90 CAPSULE
     Route: 048
     Dates: start: 20240703
  19. MAGNESIUM OXIDE [Concomitant]
     Active Substance: MAGNESIUM OXIDE
     Indication: Product used for unknown indication
     Route: 048
  20. SYSTANE (HYPROMELLOSE 2910 (4000 MPA.S)) [Concomitant]
     Active Substance: HYPROMELLOSE 2910 (4000 MPA.S)
     Indication: Product used for unknown indication
     Dosage: PEG 400-PROPYLENE GLYCOL, 0.4-0.3 % DROP
     Route: 047
  21. SYSTANE (HYPROMELLOSE 2910 (4000 MPA.S)) [Concomitant]
     Active Substance: HYPROMELLOSE 2910 (4000 MPA.S)
     Dosage: 17 G, ORAL, DAILY PRN, DISSOLVE IN 4-8 OZ OF LIQUID.
     Route: 048
  22. ZOCOR [Concomitant]
     Active Substance: SIMVASTATIN
     Indication: Product used for unknown indication
     Route: 048
  23. ZOCOR [Concomitant]
     Active Substance: SIMVASTATIN
     Dosage: EVERY EVENING
  24. SODIUM CHLORIDE [Concomitant]
     Active Substance: SODIUM CHLORIDE
     Indication: Product used for unknown indication
     Dates: start: 20190821
  25. MINERALS\VITAMINS [Concomitant]
     Active Substance: MINERALS\VITAMINS
     Indication: Product used for unknown indication
     Dosage: 90 TABLET
     Route: 048
  26. ZINC ACETATE [Concomitant]
     Active Substance: ZINC ACETATE
     Indication: Product used for unknown indication
     Route: 048
  27. ZINC ACETATE [Concomitant]
     Active Substance: ZINC ACETATE
     Dosage: 325 (65 FE) MG TABS
     Route: 048
  28. SUPER B COMPLEX [BIOTIN;CHOLINE;CYANOCOBALAMIN;FOLIC ACID;INOSITOL;NIC [Concomitant]
     Indication: Product used for unknown indication
     Route: 048
  29. SENNA AND DOCUSATE SODIUM [Concomitant]
     Active Substance: DOCUSATE SODIUM\SENNOSIDES
     Indication: Product used for unknown indication
     Dosage: 8.6 - 50 MG, PRN
     Route: 048
  30. PRILOSEC [Concomitant]
     Active Substance: OMEPRAZOLE MAGNESIUM
     Indication: Product used for unknown indication

REACTIONS (11)
  - Product use issue [Unknown]
  - COVID-19 [Unknown]
  - Enterocolitis viral [Unknown]
  - Enterocolitis haemorrhagic [Unknown]
  - Lower gastrointestinal haemorrhage [Recovered/Resolved]
  - Peripheral vascular disorder [Unknown]
  - Mental status changes [Unknown]
  - Cognitive disorder [Unknown]
  - Cardiac murmur [Unknown]
  - Musculoskeletal pain [Unknown]
  - Off label use [Unknown]

NARRATIVE: CASE EVENT DATE: 20250307
